FAERS Safety Report 25318282 (Version 4)
Quarter: 2025Q3

REPORT INFORMATION
  Report Type: Report from Study
  Country: US (occurrence: US)
  Receive Date: 20250515
  Receipt Date: 20250826
  Transmission Date: 20251021
  Serious: Yes (Death, Hospitalization, Other)
  Sender: TAKEDA
  Company Number: US-TAKEDA-2025TUS030595

PATIENT
  Age: 74 Year
  Sex: Female
  Weight: 79 kg

DRUGS (3)
  1. .ALPHA.1-PROTEINASE INHIBITOR HUMAN [Suspect]
     Active Substance: .ALPHA.1-PROTEINASE INHIBITOR HUMAN
     Indication: Alpha-1 antitrypsin deficiency
     Dosage: 60 MG/KG, 1/WEEK
     Dates: start: 20151031
  2. .ALPHA.1-PROTEINASE INHIBITOR HUMAN [Suspect]
     Active Substance: .ALPHA.1-PROTEINASE INHIBITOR HUMAN
  3. CIPRO [Suspect]
     Active Substance: CIPROFLOXACIN HYDROCHLORIDE
     Indication: Product used for unknown indication

REACTIONS (8)
  - Hepatic cirrhosis [Fatal]
  - Urinary tract infection [Unknown]
  - Muscular weakness [Unknown]
  - Fluid retention [Unknown]
  - Pneumonia [Unknown]
  - Vomiting [Unknown]
  - Dizziness [Unknown]
  - Laryngitis [Recovering/Resolving]
